FAERS Safety Report 15882887 (Version 3)
Quarter: 2019Q1

REPORT INFORMATION
  Report Type: Spontaneous
  Country: US (occurrence: US)
  Receive Date: 20190129
  Receipt Date: 20190325
  Transmission Date: 20190417
  Serious: Yes (Other)
  Sender: FDA-Public Use
  Company Number: US-CIPLA LTD.-2019US00526

PATIENT

DRUGS (6)
  1. AMLODIPINE [Suspect]
     Active Substance: AMLODIPINE BESYLATE
     Indication: BLOOD PRESSURE ABNORMAL
     Dosage: 10 MILLIGRAM, UNK, MANUFACTURED AT USA SITE
     Route: 065
  2. AMLODIPINE [Suspect]
     Active Substance: AMLODIPINE BESYLATE
     Dosage: 10 MILLIGRAM, QD (ONCE PILL IN THE MORNING)
     Route: 048
     Dates: start: 20181213
  3. ENZYMES [Concomitant]
     Indication: DYSPEPSIA
     Dosage: UNK, DAILY
     Route: 065
  4. VITAMIN D [Concomitant]
     Active Substance: CHOLECALCIFEROL
     Indication: BONE DISORDER
     Dosage: 1000 MILLIGRAM, QD, BEING TAKEN FOR SEVERAL YEARS FOR BONES
     Route: 065
  5. FISH OIL [Concomitant]
     Active Substance: FISH OIL
     Indication: CARDIAC DISORDER
     Dosage: UNK
     Route: 065
  6. MULTIVITAMIN                       /00097801/ [Concomitant]
     Active Substance: VITAMINS
     Indication: PRODUCT USED FOR UNKNOWN INDICATION
     Dosage: UNK
     Route: 065

REACTIONS (9)
  - Wrong technique in product usage process [Unknown]
  - Fatigue [Not Recovered/Not Resolved]
  - Apnoea [Not Recovered/Not Resolved]
  - Drug ineffective [Unknown]
  - Weight increased [Not Recovered/Not Resolved]
  - Feeling abnormal [Not Recovered/Not Resolved]
  - Hypertension [Not Recovered/Not Resolved]
  - Abdominal distension [Not Recovered/Not Resolved]
  - Palpitations [Not Recovered/Not Resolved]

NARRATIVE: CASE EVENT DATE: 20181213
